FAERS Safety Report 7608020-0 (Version None)
Quarter: 2011Q3

REPORT INFORMATION
  Report Type: 
  Country: None (occurrence: None)
  Receive Date: 20110714
  Receipt Date: 20110706
  Transmission Date: 20111222
  Serious: No
  Sender: FDA-Public Use
  Company Number: JP-JNJFOC-20110605506

PATIENT
  Age: 69 Year
  Sex: Female

DRUGS (4)
  1. HICORT [Concomitant]
     Route: 065
  2. FENTANYL-100 [Suspect]
     Indication: CANCER PAIN
     Dosage: 25 UG/HR + 12.5 UG/HR = 37.5 UG/HR
     Route: 062
     Dates: start: 20110604
  3. ANPEC [Concomitant]
     Route: 054
  4. SANDOSTATIN [Concomitant]
     Route: 065

REACTIONS (7)
  - APPLICATION SITE ERYTHEMA [None]
  - APPLICATION SITE PAIN [None]
  - NAUSEA [None]
  - PAIN [None]
  - DRUG DOSE OMISSION [None]
  - APPLICATION SITE HAEMATOMA [None]
  - FEELING ABNORMAL [None]
